FAERS Safety Report 8854064 (Version 2)
Quarter: 2012Q4

REPORT INFORMATION
  Report Type: 
  Country: US (occurrence: None)
  Receive Date: 20121023
  Receipt Date: 20121023
  Transmission Date: 20130627
  Serious: No
  Sender: FDA-Public Use
  Company Number: None

PATIENT
  Age: 44 Year
  Sex: Female
  Weight: 54.43 kg

DRUGS (1)
  1. METHYLPREDNISOLONE [Suspect]
     Indication: INFLAMMATION
     Dates: start: 20120728, end: 20120828

REACTIONS (9)
  - Headache [None]
  - Back pain [None]
  - Neck pain [None]
  - Pain in extremity [None]
  - Pruritus [None]
  - Chills [None]
  - Hyperhidrosis [None]
  - Dizziness [None]
  - Nausea [None]
